FAERS Safety Report 8731682 (Version 2)
Quarter: 2012Q4

REPORT INFORMATION
  Report Type: 
  Country: US (occurrence: US)
  Receive Date: 20120820
  Receipt Date: 20120928
  Transmission Date: 20130627
  Serious: Yes (Hospitalization)
  Sender: FDA-Public Use
  Company Number: US-PFIZER INC-2012202198

PATIENT
  Age: 66 Year
  Sex: Female
  Weight: 46.71 kg

DRUGS (4)
  1. CHANTIX [Suspect]
     Indication: SMOKING CESSATION THERAPY
     Dosage: UNK
     Route: 048
     Dates: start: 2011
  2. CHANTIX [Suspect]
     Dosage: 0.5 mg, daily
     Route: 048
     Dates: start: 20120701, end: 20120703
  3. PHENOBARBITAL [Concomitant]
     Indication: EPILEPSY
     Dosage: 64.8 mg, 3x/day
  4. PHENYTOIN SODIUM [Concomitant]
     Indication: EPILEPSY
     Dosage: 100 mg, 3x/day

REACTIONS (3)
  - Malnutrition [Unknown]
  - Nausea [Recovered/Resolved]
  - Malaise [Unknown]
